FAERS Safety Report 9257425 (Version 1)
Quarter: 2013Q2

REPORT INFORMATION
  Report Type: Report from Study
  Country: FR (occurrence: FR)
  Receive Date: 20130426
  Receipt Date: 20130426
  Transmission Date: 20140414
  Serious: Yes (Hospitalization)
  Sender: FDA-Public Use
  Company Number: FR-ROCHE-1073449

PATIENT
  Age: 48 Year
  Sex: Female
  Weight: 57 kg

DRUGS (22)
  1. TRASTUZUMAB [Suspect]
     Indication: BREAST CANCER
     Dosage: MOST RECENT DOSE PRIOR TO SAE 18/JUN/2012
     Route: 042
     Dates: start: 20120416, end: 20120618
  2. TRASTUZUMAB [Suspect]
     Route: 042
     Dates: start: 20120724
  3. DOCETAXEL [Suspect]
     Indication: BREAST CANCER
     Dosage: LAST DOSE PRIOR TO SAE: 18/JUN/2012
     Route: 042
     Dates: start: 20120416, end: 20120618
  4. DOCETAXEL [Suspect]
     Route: 042
     Dates: start: 20120724
  5. MEDROL [Concomitant]
     Route: 065
     Dates: start: 20120416
  6. ALODONT [Concomitant]
     Route: 065
     Dates: start: 20120416
  7. BICARBONATE [Concomitant]
     Route: 065
     Dates: start: 20120416
  8. TRIFLUCAN [Concomitant]
     Route: 065
     Dates: start: 20120427
  9. TRIFLUCAN [Concomitant]
     Route: 065
     Dates: start: 20120416
  10. DOLIPRANE [Concomitant]
     Route: 065
     Dates: start: 20120416
  11. IXPRIM [Concomitant]
     Route: 065
     Dates: start: 20120507
  12. PAROXIL [Concomitant]
     Route: 065
     Dates: start: 20120507
  13. XANAX [Concomitant]
     Route: 065
     Dates: start: 201206
  14. SPASFON [Concomitant]
     Route: 065
     Dates: start: 201207
  15. TOPALGIC [Concomitant]
     Route: 065
     Dates: start: 201207
  16. ATHYMIL [Concomitant]
     Route: 065
     Dates: start: 201207
  17. PARIET [Concomitant]
     Route: 065
     Dates: start: 201207
  18. PARACETAMOL [Concomitant]
     Route: 065
     Dates: start: 201204
  19. ATARAX [Concomitant]
     Route: 065
     Dates: start: 201207
  20. PRIMERAN [Concomitant]
     Route: 065
     Dates: start: 201207
  21. LOVENOX [Concomitant]
     Route: 065
     Dates: start: 201207
  22. ZOPHREN [Concomitant]
     Route: 065

REACTIONS (3)
  - Febrile bone marrow aplasia [Recovered/Resolved]
  - Vertigo [Not Recovered/Not Resolved]
  - Sepsis syndrome [Recovered/Resolved]
